FAERS Safety Report 4784657-1 (Version None)
Quarter: 2005Q3

REPORT INFORMATION
  Report Type: 
  Country: None (occurrence: None)
  Receive Date: 20050928
  Receipt Date: 20050919
  Transmission Date: 20060218
  Serious: Yes (Other)
  Sender: FDA-Public Use
  Company Number: 2005RR-00750

PATIENT
  Age: 39 Year
  Sex: Female

DRUGS (9)
  1. FLUOXETINE [Suspect]
  2. LINEZOLID (LINEZOLID) [Suspect]
     Indication: STAPHYLOCOCCAL BACTERAEMIA
  3. DISULFIRAM [Concomitant]
  4. BUSPIRONE HCL [Concomitant]
  5. CYCLOBENZAPRINE HCL [Concomitant]
  6. FOLATE [Concomitant]
  7. PHYTOSTIGMINE [Concomitant]
  8. LORAZEPAM [Concomitant]
  9. HALOPERIDOL [Concomitant]

REACTIONS (18)
  - AGITATION [None]
  - ALCOHOL WITHDRAWAL SYNDROME [None]
  - ANTICHOLINERGIC SYNDROME [None]
  - AUTONOMIC NERVOUS SYSTEM IMBALANCE [None]
  - CLONUS [None]
  - DRUG INTERACTION [None]
  - HYPERHIDROSIS [None]
  - LETHARGY [None]
  - LOSS OF CONSCIOUSNESS [None]
  - MENTAL STATUS CHANGES [None]
  - MYDRIASIS [None]
  - OVERDOSE [None]
  - RESPIRATORY DEPRESSION [None]
  - SALIVARY HYPERSECRETION [None]
  - SEROTONIN SYNDROME [None]
  - SPUTUM CULTURE POSITIVE [None]
  - STAPHYLOCOCCAL INFECTION [None]
  - TREMOR [None]
